FAERS Safety Report 5856305-0 (Version None)
Quarter: 2008Q3

REPORT INFORMATION
  Report Type: 
  Country: None (occurrence: None)
  Receive Date: 20080825
  Receipt Date: 20080813
  Transmission Date: 20090109
  Serious: Yes (Other)
  Sender: FDA-Public Use
  Company Number: JP-ROCHE-581687

PATIENT

DRUGS (2)
  1. ROCEPHIN [Suspect]
     Indication: RENAL FAILURE CHRONIC
     Route: 042
  2. CLINDAMYCIN HCL [Concomitant]
     Route: 065

REACTIONS (1)
  - CHOREA [None]
